APPROVED DRUG PRODUCT: MERZEE
Active Ingredient: ETHINYL ESTRADIOL; NORETHINDRONE ACETATE
Strength: 0.02MG;1MG
Dosage Form/Route: CAPSULE;ORAL
Application: A212706 | Product #001 | TE Code: AB
Applicant: WILSHIRE PHARMACEUTICALS INC
Approved: Dec 18, 2020 | RLD: No | RS: No | Type: RX